FAERS Safety Report 24106571 (Version 1)
Quarter: 2024Q3

REPORT INFORMATION
  Report Type: Spontaneous
  Country: US (occurrence: US)
  Receive Date: 20240717
  Receipt Date: 20240717
  Transmission Date: 20241017
  Serious: No
  Sender: AVERITAS
  Company Number: US-GRUNENTHAL-2023-112076

PATIENT
  Age: 65 Year
  Sex: Female

DRUGS (1)
  1. QUTENZA [Suspect]
     Active Substance: CAPSAICIN
     Indication: Diabetic neuropathy
     Dosage: UNK
     Route: 061

REACTIONS (5)
  - Product administered at inappropriate site [Unknown]
  - Application site inflammation [Not Recovered/Not Resolved]
  - Application site swelling [Unknown]
  - Application site irritation [Unknown]
  - Application site reaction [Unknown]
